FAERS Safety Report 20068672 (Version 1)
Quarter: 2021Q4

REPORT INFORMATION
  Report Type: Spontaneous
  Country: US (occurrence: None)
  Receive Date: 20211115
  Receipt Date: 20211115
  Transmission Date: 20220304
  Serious: No
  Sender: FDA-Public Use
  Company Number: 2021A790721

PATIENT
  Age: 977 Month
  Sex: Female
  Weight: 56.7 kg

DRUGS (1)
  1. BUDESONIDE\FORMOTEROL\GLYCOPYRRONIUM [Suspect]
     Active Substance: BUDESONIDE\FORMOTEROL\GLYCOPYRRONIUM
     Indication: Chronic obstructive pulmonary disease
     Dosage: 160MCG/9MCG/4.8MCG, 2 PUFFS TWICE DAILY
     Route: 055
     Dates: start: 202110

REACTIONS (4)
  - Dyspnoea [Unknown]
  - Ill-defined disorder [Unknown]
  - Diarrhoea [Unknown]
  - Heart rate increased [Unknown]

NARRATIVE: CASE EVENT DATE: 20211001
